FAERS Safety Report 25547225 (Version 3)
Quarter: 2025Q4

REPORT INFORMATION
  Report Type: Spontaneous
  Country: JP (occurrence: JP)
  Receive Date: 20250714
  Receipt Date: 20251002
  Transmission Date: 20260117
  Serious: Yes (Other)
  Sender: TAKEDA
  Company Number: JP-TAKEDA-2025TJP006994

PATIENT
  Age: 6 Decade
  Sex: Female

DRUGS (1)
  1. FRUZAQLA [Suspect]
     Active Substance: FRUQUINTINIB
     Indication: Colon cancer
     Dosage: 3 MILLIGRAM, QD
     Dates: start: 20250109

REACTIONS (2)
  - Metastases to bone [Unknown]
  - Bone pain [Recovering/Resolving]
